FAERS Safety Report 11867843 (Version 1)
Quarter: 2015Q4

REPORT INFORMATION
  Report Type: Spontaneous
  Country: US (occurrence: US)
  Receive Date: 20151224
  Receipt Date: 20151224
  Transmission Date: 20160305
  Serious: No
  Sender: FDA-Public Use
  Company Number: US-GUERBET LLC-1045880

PATIENT
  Age: 31 Year
  Sex: Female
  Weight: 86 kg

DRUGS (1)
  1. OXILAN [Suspect]
     Active Substance: IOXILAN
     Indication: COMPUTERISED TOMOGRAM
     Route: 042
     Dates: start: 20100406, end: 20100406

REACTIONS (2)
  - Pruritus [Recovered/Resolved]
  - Urticaria [Recovered/Resolved]

NARRATIVE: CASE EVENT DATE: 20100406
